FAERS Safety Report 9434486 (Version 3)
Quarter: 2014Q3

REPORT INFORMATION
  Report Type: Report from Study
  Country: US (occurrence: US)
  Receive Date: 20130801
  Receipt Date: 20140926
  Transmission Date: 20150326
  Serious: Yes (Life-Threatening, Hospitalization, Other)
  Sender: FDA-Public Use
  Company Number: US-UCBSA-093463

PATIENT
  Age: 40 Year
  Sex: Female
  Weight: 104.1 kg

DRUGS (10)
  1. CERTOLIZUMAB PEGOL RA [Suspect]
     Active Substance: CERTOLIZUMAB PEGOL
     Indication: RHEUMATOID ARTHRITIS
     Dosage: NO. OF DOSES RECEIVED: 25
     Route: 058
     Dates: start: 20120817, end: 20130702
  2. TOPAMAX [Concomitant]
     Active Substance: TOPIRAMATE
     Indication: EPILEPSY
     Dosage: 25 MG, 2X/DAY (BID)
     Route: 048
     Dates: start: 1991
  3. PREDNISONE. [Concomitant]
     Active Substance: PREDNISONE
     Dates: start: 20130702
  4. FOLIC ACID. [Concomitant]
     Active Substance: FOLIC ACID
     Indication: PROPHYLAXIS
     Dosage: 1 MG, ONCE DAILY (QD)
     Route: 048
     Dates: start: 1991
  5. BENADRYL [Concomitant]
     Active Substance: DIPHENHYDRAMINE HYDROCHLORIDE
     Indication: PRURITUS
     Dates: start: 20130702, end: 201307
  6. NAPROXEN. [Concomitant]
     Active Substance: NAPROXEN
     Dosage: QHS
     Route: 048
     Dates: start: 20120716
  7. BENADRYL [Concomitant]
     Active Substance: DIPHENHYDRAMINE HYDROCHLORIDE
     Dosage: 25 MG, 3X/DAY (TID)
     Dates: start: 201307
  8. NAPROXEN. [Concomitant]
     Active Substance: NAPROXEN
     Indication: RHEUMATOID ARTHRITIS
     Dosage: 1000 MG, ONCE DAILY (QD)
     Route: 048
     Dates: start: 20120716
  9. PHENOBARBITAL. [Concomitant]
     Active Substance: PHENOBARBITAL
     Indication: EPILEPSY
     Dosage: 15MG/5ML QHS
     Route: 048
     Dates: start: 1991
  10. METHOTREXATE [Concomitant]
     Active Substance: METHOTREXATE
     Indication: RHEUMATOID ARTHRITIS

REACTIONS (3)
  - Hyperglycaemia [Not Recovered/Not Resolved]
  - Food allergy [Recovered/Resolved]
  - Anaphylactic shock [Recovered/Resolved]

NARRATIVE: CASE EVENT DATE: 20130702
